FAERS Safety Report 18412115 (Version 1)
Quarter: 2020Q4

REPORT INFORMATION
  Report Type: Report from Study
  Country: MX (occurrence: MX)
  Receive Date: 20201021
  Receipt Date: 20201021
  Transmission Date: 20210114
  Serious: Yes (Other)
  Sender: FDA-Public Use
  Company Number: MX-UCBSA-2020036723

PATIENT
  Age: 3 Day
  Sex: Male

DRUGS (3)
  1. KEPPRA [Suspect]
     Active Substance: LEVETIRACETAM
     Indication: PRODUCT USED FOR UNKNOWN INDICATION
     Dosage: UNK
     Dates: start: 20190327, end: 20190407
  2. LEVETIRACETAM. [Suspect]
     Active Substance: LEVETIRACETAM
     Indication: SEIZURE
     Dosage: 10 DROP, 3X/DAY (TID)
     Route: 048
     Dates: start: 20190408, end: 2019
  3. PHENYTOIN. [Concomitant]
     Active Substance: PHENYTOIN
     Indication: SEIZURE
     Dosage: 10 DROP, 2X/DAY (BID)
     Route: 048
     Dates: start: 20190408

REACTIONS (2)
  - Off label use [Unknown]
  - Sepsis neonatal [Unknown]

NARRATIVE: CASE EVENT DATE: 20190327
